FAERS Safety Report 10173780 (Version 3)
Quarter: 2014Q2

REPORT INFORMATION
  Report Type: Spontaneous
  Country: FI (occurrence: FI)
  Receive Date: 20140515
  Receipt Date: 20140619
  Transmission Date: 20141212
  Serious: Yes (Other)
  Sender: FDA-Public Use
  Company Number: FI-AMGEN-FINSP2013087114

PATIENT
  Sex: 0

DRUGS (3)
  1. ENBREL [Suspect]
     Indication: PRODUCT USED FOR UNKNOWN INDICATION
     Dosage: 25 MG, 2 TIMES/WK
     Route: 064
     Dates: start: 20060818
  2. THYROXIN [Concomitant]
     Indication: HYPOTHYROIDISM
     Dosage: 0.1 MG AT 1.5 TABLETS/DAY 4 TIMES A WEEK AND 2 TABLETS/DAY 3 TIMES A WEEK
  3. PRIMASPAN [Concomitant]
     Indication: ANTICOAGULANT THERAPY
     Dosage: 100 MG, ONCE DAILY
     Dates: start: 20131112

REACTIONS (7)
  - Maternal exposure during pregnancy [Unknown]
  - Foetal malposition [Unknown]
  - Premature baby [Unknown]
  - Electrocardiogram abnormal [Recovered/Resolved]
  - Blood bilirubin increased [Recovering/Resolving]
  - Single umbilical artery [Unknown]
  - Limb deformity [Recovering/Resolving]
